FAERS Safety Report 9113818 (Version 1)
Quarter: 2013Q1

REPORT INFORMATION
  Report Type: Spontaneous
  Country: IT (occurrence: IT)
  Receive Date: 20130208
  Receipt Date: 20130208
  Transmission Date: 20140127
  Serious: Yes (Other)
  Sender: FDA-Public Use
  Company Number: IT-ASTRAZENECA-2013SE07756

PATIENT
  Age: 25568 Day
  Sex: Female

DRUGS (7)
  1. ATENOLOL [Suspect]
     Route: 048
     Dates: start: 20111027
  2. ATENOLOL [Suspect]
     Route: 048
  3. XANAX [Concomitant]
     Dosage: 0.75 MG/ML ORAL DROPS
  4. VALSARTAN [Concomitant]
  5. SIMVASTATIN [Concomitant]
  6. LANSOPRAZOLE [Concomitant]
  7. FOLIC ACID [Concomitant]

REACTIONS (1)
  - Sinus bradycardia [Not Recovered/Not Resolved]
